FAERS Safety Report 9290564 (Version 2)
Quarter: 2013Q3

REPORT INFORMATION
  Report Type: Spontaneous
  Country: US (occurrence: US)
  Receive Date: 20130515
  Receipt Date: 20130711
  Transmission Date: 20140515
  Serious: Yes (Other)
  Sender: FDA-Public Use
  Company Number: US-PFIZER INC-2013146016

PATIENT
  Age: 56 Year
  Sex: Male
  Weight: 129 kg

DRUGS (11)
  1. LIPITOR [Suspect]
     Indication: BLOOD CHOLESTEROL INCREASED
     Dosage: 80 MG, 1X/DAY
     Route: 048
  2. HUMALOG MIX 50 / 50 [Concomitant]
     Dosage: UNK
  3. SYMLIN [Concomitant]
     Dosage: 120 UG, UNK
  4. RANITIDINE [Concomitant]
     Indication: DYSPEPSIA
     Dosage: UNK
  5. PLAVIX [Concomitant]
     Dosage: UNK
  6. METOPROLOL [Concomitant]
     Dosage: UNK
  7. LASIX [Concomitant]
     Dosage: UNK
  8. CLONIDINE [Concomitant]
     Dosage: UNK
  9. LOSARTAN [Concomitant]
     Dosage: UNK
  10. PHENOBARBITAL [Concomitant]
     Dosage: UNK
  11. NIFEDIPINE [Concomitant]
     Dosage: UNK

REACTIONS (7)
  - Eye disorder [Unknown]
  - Eye disorder [Unknown]
  - Eye disorder [Unknown]
  - Blindness unilateral [Unknown]
  - Retinal vein occlusion [Unknown]
  - Renal impairment [Unknown]
  - Hypertension [Unknown]
